FAERS Safety Report 5290233-7 (Version None)
Quarter: 2007Q2

REPORT INFORMATION
  Report Type: 
  Country: None (occurrence: None)
  Receive Date: 20070402
  Receipt Date: 20070327
  Transmission Date: 20071010
  Serious: Yes (Death, Hospitalization)
  Sender: FDA-Public Use
  Company Number: 154491USA

PATIENT
  Age: 55 Year
  Sex: Female

DRUGS (1)
  1. COPAXONE [Suspect]

REACTIONS (4)
  - DEMENTIA [None]
  - MULTIPLE SCLEROSIS [None]
  - NOSOCOMIAL INFECTION [None]
  - PNEUMONIA [None]
